FAERS Safety Report 4877286-2 (Version None)
Quarter: 2006Q1

REPORT INFORMATION
  Report Type: 
  Country: None (occurrence: None)
  Receive Date: 20060106
  Receipt Date: 20060102
  Transmission Date: 20060701
  Serious: Yes (Other)
  Sender: FDA-Public Use
  Company Number: 2005-12-1249

PATIENT
  Sex: Male

DRUGS (1)
  1. CELESTONE [Suspect]
     Indication: MUSCULOSKELETAL DISORDER
     Dosage: 4 MG TID ORAL
     Route: 048
     Dates: start: 20051220

REACTIONS (1)
  - ACUTE PULMONARY OEDEMA [None]
